FAERS Safety Report 9859493 (Version 2)
Quarter: 2014Q1

REPORT INFORMATION
  Report Type: Spontaneous
  Country: US (occurrence: US)
  Receive Date: 20140131
  Receipt Date: 20140131
  Transmission Date: 20141002
  Serious: Yes (Hospitalization)
  Sender: FDA-Public Use
  Company Number: US-B.I. PHARMACEUTICALS,INC./RIDGEFIELD-2013-BI-40568BP

PATIENT
  Sex: Female
  Weight: 49.44 kg

DRUGS (8)
  1. PRADAXA [Suspect]
     Indication: ATRIAL FIBRILLATION
     Dosage: 150 MG
     Dates: start: 20111017, end: 20120328
  2. RYTHMOL [Concomitant]
  3. STOOL SOFTENERS [Concomitant]
  4. LISINOPRIL [Concomitant]
     Dosage: 10 MG
     Route: 048
  5. IMDUR [Concomitant]
     Dosage: 30 MG
     Route: 048
  6. ATENOLOL [Concomitant]
     Dosage: 50 MG
  7. NORVASC [Concomitant]
     Dosage: 5 MG
  8. ASPIRIN [Concomitant]
     Dosage: 81 MG
     Route: 048

REACTIONS (2)
  - Gastrointestinal haemorrhage [Unknown]
  - Anaemia [Unknown]
